FAERS Safety Report 12550747 (Version 2)
Quarter: 2016Q3

REPORT INFORMATION
  Report Type: Spontaneous
  Country: US (occurrence: US)
  Receive Date: 20160712
  Receipt Date: 20160919
  Transmission Date: 20161109
  Serious: No
  Sender: FDA-Public Use
  Company Number: US-ASTRAZENECA-2016SE72467

PATIENT
  Age: 25505 Day
  Sex: Female
  Weight: 92.1 kg

DRUGS (11)
  1. LOVASTATIN. [Concomitant]
     Active Substance: LOVASTATIN
     Indication: BLOOD CHOLESTEROL INCREASED
     Route: 048
  2. MULTIVITAMIN [Concomitant]
     Active Substance: VITAMINS
     Route: 048
     Dates: start: 2006
  3. FIBER CAPSULES [Concomitant]
     Route: 048
  4. DOCUSATE [Concomitant]
     Active Substance: DOCUSATE
     Route: 048
  5. BAYER ASPIRIN [Concomitant]
     Active Substance: ASPIRIN
     Indication: ILL-DEFINED DISORDER
     Route: 048
  6. FISH OIL [Concomitant]
     Active Substance: FISH OIL
     Route: 048
  7. SOY ISOFLAVONES [Concomitant]
     Active Substance: SOY ISOFLAVONES
     Indication: HOT FLUSH
     Route: 048
  8. PAROXETINE. [Concomitant]
     Active Substance: PAROXETINE
     Indication: NERVE INJURY
     Route: 048
     Dates: start: 2011
  9. BYDUREON [Suspect]
     Active Substance: EXENATIDE
     Indication: TYPE 2 DIABETES MELLITUS
     Dosage: 2 MG POWDER 4 COUNT VIAL SINGLE DOSE, ONCE A WEEK
     Route: 058
     Dates: start: 20160609
  10. OMEPRAZOLE MAGNESIUM. [Suspect]
     Active Substance: OMEPRAZOLE MAGNESIUM
     Indication: GASTROOESOPHAGEAL REFLUX DISEASE
     Route: 048
     Dates: start: 2015
  11. CRANBERRY TABLET [Concomitant]
     Route: 048
     Dates: start: 201601

REACTIONS (2)
  - Blood glucose increased [Unknown]
  - Device leakage [Unknown]

NARRATIVE: CASE EVENT DATE: 20160612
